FAERS Safety Report 4489083-0 (Version None)
Quarter: 2004Q4

REPORT INFORMATION
  Report Type: 
  Country: None (occurrence: None)
  Receive Date: 20041029
  Receipt Date: 20040818
  Transmission Date: 20050328
  Serious: Yes (Other)
  Sender: FDA-Public Use
  Company Number: US-ROCHE-378168

PATIENT
  Age: 38 Year
  Sex: Female

DRUGS (3)
  1. TRETINOIN [Suspect]
     Route: 048
     Dates: start: 20040721, end: 20040903
  2. IDARUBICIN [Suspect]
     Route: 065
     Dates: start: 20040715
  3. FLUCONAZOLE [Suspect]
     Indication: PROPHYLAXIS
     Route: 048
     Dates: start: 20040802, end: 20040810

REACTIONS (4)
  - ANXIETY [None]
  - DIPLOPIA [None]
  - FEBRILE NEUTROPENIA [None]
  - FULL BLOOD COUNT DECREASED [None]
